FAERS Safety Report 7356339-3 (Version None)
Quarter: 2011Q1

REPORT INFORMATION
  Report Type: 
  Country: None (occurrence: None)
  Receive Date: 20110316
  Receipt Date: 20110309
  Transmission Date: 20110831
  Serious: Yes (Other)
  Sender: FDA-Public Use
  Company Number: US-ELI_LILLY_AND_COMPANY-US201101000776

PATIENT
  Sex: Female

DRUGS (11)
  1. FORTEO [Suspect]
     Dosage: 20 UG, EACH EVENING
  2. METROLOTION [Concomitant]
     Indication: ROSACEA
     Dosage: UNK, 2/D
  3. VIT C [Concomitant]
     Dosage: 250 MG, DAILY (1/D)
     Route: 048
  4. VACCINE, INFLUENZAE [Concomitant]
  5. CALCIUM +VIT D [Concomitant]
     Dosage: 500 MG, 2/D
     Route: 048
  6. COQ-10 [Concomitant]
     Dosage: 100 MG, 3/W
  7. MAXZIDE [Concomitant]
     Dosage: UNK, EACH MORNING
     Route: 048
  8. FORTEO [Suspect]
     Indication: OSTEOPOROSIS
     Dosage: 20 UG, DAILY (1/D)
     Route: 065
     Dates: start: 20101101, end: 20110210
  9. NEXIUM [Concomitant]
     Dosage: 40 MG, DAILY (1/D)
     Route: 048
  10. AMITRIPTLINE HYDROCHLORIDE TAB [Concomitant]
     Dosage: 50 MG, EACH EVENING
     Route: 048
  11. MIRALAX [Concomitant]
     Dosage: 17 G, EACH EVENING
     Route: 048

REACTIONS (5)
  - LIGAMENT PAIN [None]
  - MYALGIA [None]
  - VERTEBROPLASTY [None]
  - HAEMORRHOID OPERATION [None]
  - FEELING ABNORMAL [None]
